FAERS Safety Report 20899470 (Version 1)
Quarter: 2022Q2

REPORT INFORMATION
  Report Type: Report from Study
  Country: DK (occurrence: None)
  Receive Date: 20220601
  Receipt Date: 20220601
  Transmission Date: 20220721
  Serious: Yes (Hospitalization)
  Sender: FDA-Public Use
  Company Number: DK-ROCHE-3105123

PATIENT
  Sex: Male
  Weight: 72 kg

DRUGS (3)
  1. COBIMETINIB [Suspect]
     Active Substance: COBIMETINIB
     Indication: Neoplasm
     Route: 048
     Dates: start: 20220425, end: 20220505
  2. VEMURAFENIB [Suspect]
     Active Substance: VEMURAFENIB
     Indication: Neoplasm
     Route: 048
     Dates: start: 20220425, end: 20220505
  3. CEFTAZIDIME [Concomitant]
     Active Substance: CEFTAZIDIME
     Dates: start: 20220504, end: 20220505

REACTIONS (1)
  - Infection [Recovered/Resolved]

NARRATIVE: CASE EVENT DATE: 20220504
